FAERS Safety Report 5184720-X (Version None)
Quarter: 2006Q4

REPORT INFORMATION
  Report Type: 
  Country: None (occurrence: None)
  Receive Date: 20061220
  Receipt Date: 20060418
  Transmission Date: 20070319
  Serious: No
  Sender: FDA-Public Use
  Company Number: US-GLAXOSMITHKLINE-A0602223A

PATIENT
  Age: 46 Year
  Sex: Female

DRUGS (3)
  1. NICODERM CQ [Suspect]
  2. NICODERM CQ [Suspect]
  3. NICODERM CQ [Suspect]
     Dates: start: 20060417

REACTIONS (6)
  - ANXIETY [None]
  - APATHY [None]
  - FATIGUE [None]
  - NERVOUSNESS [None]
  - PALPITATIONS [None]
  - SLEEP DISORDER [None]
